FAERS Safety Report 23527711 (Version 1)
Quarter: 2024Q1

REPORT INFORMATION
  Report Type: Report from Study
  Country: US (occurrence: US)
  Receive Date: 20240215
  Receipt Date: 20240215
  Transmission Date: 20240410
  Serious: Yes (Hospitalization)
  Sender: FDA-Public Use
  Company Number: US-TAKEDA-2024TUS012421

PATIENT
  Age: 61 Year
  Sex: Female

DRUGS (1)
  1. IDURSULFASE [Suspect]
     Active Substance: IDURSULFASE
     Indication: Prophylaxis against diarrhoea
     Dosage: UNK UNK, QD
     Route: 048

REACTIONS (6)
  - Cellulitis [Unknown]
  - Insurance issue [Unknown]
  - Anxiety [Unknown]
  - Gastrointestinal disorder [Unknown]
  - Product distribution issue [Unknown]
  - Product use issue [Unknown]
